FAERS Safety Report 17512196 (Version 4)
Quarter: 2020Q2

REPORT INFORMATION
  Report Type: Spontaneous
  Country: US (occurrence: US)
  Receive Date: 20200306
  Receipt Date: 20200407
  Transmission Date: 20200713
  Serious: Yes (Other)
  Sender: FDA-Public Use
  Company Number: US-SUNOVION-2020SUN000775

PATIENT
  Age: 53 Year
  Sex: Female

DRUGS (11)
  1. OXCARBAZEPINE. [Suspect]
     Active Substance: OXCARBAZEPINE
     Dosage: 300 MG, TID
     Route: 065
  2. MELATONIN [Suspect]
     Active Substance: MELATONIN
     Dosage: 9 MG, QD (EVERY EVENING)
     Route: 065
  3. BUPROPION. [Suspect]
     Active Substance: BUPROPION
     Dosage: 100 MG, TID
     Route: 065
  4. LISINOPRIL. [Suspect]
     Active Substance: LISINOPRIL
     Dosage: 10 MG, QD
     Route: 065
  5. RIVAROXABAN [Suspect]
     Active Substance: RIVAROXABAN
     Dosage: 20 MG, QD
     Route: 065
  6. PREGABALIN. [Suspect]
     Active Substance: PREGABALIN
     Dosage: 150 MG, TID
     Route: 065
  7. LATUDA [Suspect]
     Active Substance: LURASIDONE HYDROCHLORIDE
     Dosage: UNK, TAPERED
     Route: 048
  8. FLUVOXAMINE [Suspect]
     Active Substance: FLUVOXAMINE
     Dosage: 50 MG, BID
     Route: 065
  9. METHYLPHENIDATE. [Suspect]
     Active Substance: METHYLPHENIDATE
     Dosage: 20 MG, QD (EVERY MORNING)
     Route: 065
  10. LATUDA [Suspect]
     Active Substance: LURASIDONE HYDROCHLORIDE
     Dosage: 120 MG, QD (AT DINNER)
     Route: 048
  11. VERAPAMIL [Suspect]
     Active Substance: VERAPAMIL HYDROCHLORIDE
     Dosage: 40 MG, TID
     Route: 065

REACTIONS (4)
  - Gastric bypass [Unknown]
  - Malabsorption [Unknown]
  - Drug-disease interaction [Unknown]
  - Drug level decreased [Unknown]
